FAERS Safety Report 10596757 (Version 1)
Quarter: 2014Q4

REPORT INFORMATION
  Report Type: Report from Study
  Country: AR (occurrence: AR)
  Receive Date: 20141120
  Receipt Date: 20141120
  Transmission Date: 20150529
  Serious: Yes (Other)
  Sender: FDA-Public Use
  Company Number: PHHY2014AR151842

PATIENT
  Sex: Female

DRUGS (1)
  1. DIOVAN D [Suspect]
     Active Substance: HYDROCHLOROTHIAZIDE\VALSARTAN
     Indication: HYPERTENSION
     Dosage: 0.5 DF (160 UNITS NOT REPORTED), BID (IN THE MORNING AND AT NIGHT)
     Route: 048

REACTIONS (10)
  - Cardiac disorder [Recovering/Resolving]
  - Tibia fracture [Recovering/Resolving]
  - Fibula fracture [Recovering/Resolving]
  - Diabetes mellitus [Recovering/Resolving]
  - Wrong technique in drug usage process [Unknown]
  - Blood cholesterol abnormal [Recovering/Resolving]
  - Eye disorder [Recovering/Resolving]
  - Ankle fracture [Recovering/Resolving]
  - Gastric perforation [Recovering/Resolving]
  - Fall [Recovering/Resolving]
